FAERS Safety Report 4907759-5 (Version None)
Quarter: 2006Q1

REPORT INFORMATION
  Report Type: 
  Country: None (occurrence: None)
  Receive Date: 20060210
  Receipt Date: 20060131
  Transmission Date: 20060701
  Serious: Yes (Hospitalization)
  Sender: FDA-Public Use
  Company Number: JP-JNJFOC-20050801757

PATIENT
  Sex: Male
  Weight: 57 kg

DRUGS (7)
  1. REMICADE [Suspect]
     Route: 042
  2. REMICADE [Suspect]
     Route: 042
  3. REMICADE [Suspect]
     Route: 042
  4. REMICADE [Suspect]
     Route: 042
  5. REMICADE [Suspect]
     Indication: CROHN'S DISEASE
     Route: 042
  6. HALCION [Concomitant]
     Route: 048
  7. RACOL ENTERAL NUTRITION [Concomitant]
     Route: 050

REACTIONS (4)
  - CHEST X-RAY ABNORMAL [None]
  - HOSPITALISATION [None]
  - PYREXIA [None]
  - SPUTUM CULTURE POSITIVE [None]
